FAERS Safety Report 17142262 (Version 1)
Quarter: 2019Q4

REPORT INFORMATION
  Report Type: Report from Study
  Country: JP (occurrence: JP)
  Receive Date: 20191211
  Receipt Date: 20191211
  Transmission Date: 20200122
  Serious: Yes (Death)
  Sender: FDA-Public Use
  Company Number: JP-EISAI MEDICAL RESEARCH-EC-2019-066908

PATIENT
  Age: 64 Year
  Sex: Female
  Weight: 49 kg

DRUGS (4)
  1. LENVIMA [Suspect]
     Active Substance: LENVATINIB
     Route: 048
     Dates: start: 20181006, end: 20181105
  2. LENVIMA [Suspect]
     Active Substance: LENVATINIB
     Indication: HEPATOCELLULAR CARCINOMA
     Route: 048
     Dates: start: 20181002, end: 20181005
  3. PORTOLAC [Concomitant]
     Active Substance: LACTITOL
  4. LENVIMA [Suspect]
     Active Substance: LENVATINIB
     Route: 048
     Dates: start: 20181204, end: 20190201

REACTIONS (2)
  - Decreased appetite [Fatal]
  - Jaundice [Fatal]

NARRATIVE: CASE EVENT DATE: 20190201
